FAERS Safety Report 20189557 (Version 1)
Quarter: 2021Q4

REPORT INFORMATION
  Report Type: Spontaneous
  Country: BG (occurrence: BG)
  Receive Date: 20211215
  Receipt Date: 20211215
  Transmission Date: 20220303
  Serious: Yes (Hospitalization, Other)
  Sender: FDA-Public Use
  Company Number: BG-SA-2021SA351461

PATIENT
  Age: 23 Year
  Sex: Male

DRUGS (1)
  1. AMIODARONE [Suspect]
     Active Substance: AMIODARONE
     Indication: Atrial tachycardia
     Dosage: UNK

REACTIONS (4)
  - Hypothyroidism [Unknown]
  - Atrial tachycardia [Recovered/Resolved]
  - Treatment failure [Recovered/Resolved]
  - Disease recurrence [Recovered/Resolved]
